FAERS Safety Report 10345571 (Version 1)
Quarter: 2014Q3

REPORT INFORMATION
  Report Type: Spontaneous
  Country: US (occurrence: None)
  Receive Date: 20140725
  Receipt Date: 20140725
  Transmission Date: 20150326
  Serious: Yes (Hospitalization)
  Sender: FDA-Public Use
  Company Number: None

PATIENT
  Age: 32 Year
  Sex: Male
  Weight: 177.36 kg

DRUGS (8)
  1. LOPERAMIDE [Concomitant]
     Active Substance: LOPERAMIDE
  2. HYDROCODONE ACETAMINOPHEN [Concomitant]
     Active Substance: ACETAMINOPHEN\HYDROCODONE BITARTRATE
  3. ALPRAZOLAM. [Concomitant]
     Active Substance: ALPRAZOLAM
  4. CYCLOBENZAPRINE [Concomitant]
     Active Substance: CYCLOBENZAPRINE
  5. ACETAMINOPHEN. [Concomitant]
     Active Substance: ACETAMINOPHEN
  6. LEVOMILNACIPRAN [Suspect]
     Active Substance: LEVOMILNACIPRAN
     Indication: DEPRESSION
     Route: 048
     Dates: start: 20140718, end: 20140723
  7. LEVOMILNACIPRAN [Suspect]
     Active Substance: LEVOMILNACIPRAN
     Indication: ANXIETY
     Route: 048
     Dates: start: 20140718, end: 20140723
  8. SULINDAC. [Concomitant]
     Active Substance: SULINDAC

REACTIONS (5)
  - Blood pressure systolic increased [None]
  - Malaise [None]
  - Hyperhidrosis [None]
  - Asthenia [None]
  - Unevaluable event [None]

NARRATIVE: CASE EVENT DATE: 20140722
